FAERS Safety Report 15441311 (Version 1)
Quarter: 2018Q3

REPORT INFORMATION
  Report Type: Spontaneous
  Country: US (occurrence: US)
  Receive Date: 20180928
  Receipt Date: 20180928
  Transmission Date: 20181010
  Serious: No
  Sender: FDA-Public Use
  Company Number: US-JUBILANT CADISTA PHARMACEUTICALS-2018JUB00154

PATIENT
  Age: 68 Year
  Sex: Female
  Weight: 104.31 kg

DRUGS (12)
  1. PREDNISONE. [Suspect]
     Active Substance: PREDNISONE
     Dosage: 5 MG, 1X/DAY
     Dates: start: 201804, end: 20180420
  2. HYDROCHLOROTHIAZIDE. [Concomitant]
     Active Substance: HYDROCHLOROTHIAZIDE
  3. PREDNISONE. [Suspect]
     Active Substance: PREDNISONE
     Indication: ARTHRITIS
     Dosage: 15 MG, 1X/DAY
     Route: 048
     Dates: start: 20180414, end: 201804
  4. LANTUS [Concomitant]
     Active Substance: INSULIN GLARGINE
  5. PREDNISONE. [Suspect]
     Active Substance: PREDNISONE
     Dosage: 10 MG, 1X/DAY
     Dates: start: 201804, end: 201804
  6. WARFARIN [Concomitant]
     Active Substance: WARFARIN
     Dosage: 5 MG, 1X/DAY
  7. PREDNISONE. [Suspect]
     Active Substance: PREDNISONE
     Indication: BRONCHIAL DISORDER
     Dosage: 30 MG, 1X/DAY
     Route: 048
     Dates: start: 20180411, end: 20180414
  8. WARFARIN [Concomitant]
     Active Substance: WARFARIN
     Dosage: 5MG DAILY ALTERNATING WITH 2.5 MG DAILY
  9. DIOVAN [Concomitant]
     Active Substance: VALSARTAN
  10. PLAQUENIL [Concomitant]
     Active Substance: HYDROXYCHLOROQUINE SULFATE
  11. METFORMIN [Concomitant]
     Active Substance: METFORMIN HYDROCHLORIDE
     Dosage: 1000 MG, 2X/DAY
  12. METOPROLOL. [Concomitant]
     Active Substance: METOPROLOL
     Dosage: UNK
     Dates: start: 201709

REACTIONS (4)
  - Breath sounds abnormal [Not Recovered/Not Resolved]
  - Bronchial disorder [Not Recovered/Not Resolved]
  - International normalised ratio decreased [Not Recovered/Not Resolved]
  - Drug ineffective [Recovered/Resolved]

NARRATIVE: CASE EVENT DATE: 201804
